FAERS Safety Report 20236333 (Version 1)
Quarter: 2021Q4

REPORT INFORMATION
  Report Type: Report from Study
  Country: AR (occurrence: AR)
  Receive Date: 20211228
  Receipt Date: 20211228
  Transmission Date: 20220303
  Serious: Yes (Other)
  Sender: FDA-Public Use
  Company Number: AR-NOVARTISPH-NVSC2021AR280432

PATIENT
  Age: 57 Year
  Sex: Female

DRUGS (7)
  1. DIOVAN [Suspect]
     Active Substance: VALSARTAN
     Indication: Hypertension
     Dosage: 2 DOSAGE FORM, QD (APPROXIMATELY SINCE 00-00-2011)
     Route: 065
  2. DIOVAN [Suspect]
     Active Substance: VALSARTAN
     Dosage: 1 DOSAGE FORM, QD (1 OF 160MG, DAILY AT FASTING)
     Route: 065
     Dates: start: 2011
  3. METFORMIN HYDROCHLORIDE\VILDAGLIPTIN [Suspect]
     Active Substance: METFORMIN HYDROCHLORIDE\VILDAGLIPTIN
     Indication: Diabetes mellitus
     Dosage: 2 DOSAGE FORM, BID OF 50/1000 MG, IN THE MORNING AND AT NIGHT
     Route: 065
     Dates: start: 202011, end: 202102
  4. METFORMIN HYDROCHLORIDE\VILDAGLIPTIN [Suspect]
     Active Substance: METFORMIN HYDROCHLORIDE\VILDAGLIPTIN
     Dosage: 2 DOSAGE FORM, BID OF 50/500 MG, IN THE MORNING AND AT NIGHT
     Route: 065
     Dates: start: 202102, end: 202109
  5. VILDAGLIPTIN [Suspect]
     Active Substance: VILDAGLIPTIN
     Indication: Diabetes mellitus
     Dosage: 1 DOSAGE FORM OF 50 MG, QD (AT NOON)
     Route: 065
     Dates: start: 202109
  6. AMARYL [Concomitant]
     Active Substance: GLIMEPIRIDE
     Indication: Diabetes mellitus
     Dosage: 0.5 DOSAGE FORM OF 4 MG, QD
     Route: 065
     Dates: start: 202011
  7. LEVOTHYROXINE [Concomitant]
     Active Substance: LEVOTHYROXINE
     Indication: Product used for unknown indication
     Dosage: 0.25 MG, QD (DAILY AT FASTING, STARTED MORE THAN 10 YEARS AGO)
     Route: 065

REACTIONS (5)
  - Blood pressure increased [Unknown]
  - Bowel movement irregularity [Unknown]
  - Malaise [Unknown]
  - Drug intolerance [Unknown]
  - Diarrhoea [Recovered/Resolved]

NARRATIVE: CASE EVENT DATE: 20210901
